FAERS Safety Report 23830909 (Version 1)
Quarter: 2024Q2

REPORT INFORMATION
  Report Type: Spontaneous
  Country: US (occurrence: None)
  Receive Date: 20240507
  Receipt Date: 20240507
  Transmission Date: 20240716
  Serious: Yes (Hospitalization)
  Sender: FDA-Public Use
  Company Number: None

PATIENT
  Age: 84 Year
  Sex: Male
  Weight: 89 kg

DRUGS (1)
  1. CIPROFLOXACIN [Suspect]
     Active Substance: CIPROFLOXACIN
     Indication: Urinary tract infection
     Dosage: FREQUENCY : TWICE A DAY;?
     Route: 048
     Dates: start: 20221103, end: 20221106

REACTIONS (6)
  - Rash [None]
  - Penile swelling [None]
  - Penile erythema [None]
  - Petechiae [None]
  - Cutaneous vasculitis [None]
  - Infection [None]

NARRATIVE: CASE EVENT DATE: 20221109
